FAERS Safety Report 15288718 (Version 2)
Quarter: 2018Q4

REPORT INFORMATION
  Report Type: Spontaneous
  Country: GB (occurrence: GB)
  Receive Date: 20180817
  Receipt Date: 20181210
  Transmission Date: 20190204
  Serious: Yes (Life-Threatening, Hospitalization, Other)
  Sender: FDA-Public Use
  Company Number: GB-BAUSCH-BL-2018-022217

PATIENT
  Age: 75 Year
  Sex: Male

DRUGS (6)
  1. INSULIN [Concomitant]
     Active Substance: INSULIN NOS
     Indication: TYPE 2 DIABETES MELLITUS
  2. PREDNISOLONE. [Suspect]
     Active Substance: PREDNISOLONE
     Indication: TEMPORAL ARTERITIS
     Route: 048
  3. METHYL PREDNISOLONE [Suspect]
     Active Substance: METHYLPREDNISOLONE
     Dosage: AGGRESSIVELY WEANED
     Route: 065
  4. PREDNISOLONE. [Suspect]
     Active Substance: PREDNISOLONE
     Dosage: WEAN BY 10 MG EACH WEEK
     Route: 048
  5. METFORMIN [Concomitant]
     Active Substance: METFORMIN HYDROCHLORIDE
     Indication: TYPE 2 DIABETES MELLITUS
     Route: 065
  6. METHYL PREDNISOLONE [Suspect]
     Active Substance: METHYLPREDNISOLONE
     Indication: TEMPORAL ARTERITIS
     Route: 065

REACTIONS (20)
  - Mucormycosis [Unknown]
  - Candida infection [Unknown]
  - Acute kidney injury [Unknown]
  - Vasculitis [Unknown]
  - Cerebellar artery occlusion [Unknown]
  - Diabetic ketoacidosis [Unknown]
  - Hydrocephalus [Unknown]
  - Cavernous sinus thrombosis [Unknown]
  - Ophthalmoplegia [Unknown]
  - Pupil fixed [Unknown]
  - Staphylococcal infection [Unknown]
  - Arteriovenous fistula [Unknown]
  - Fungal infection [Unknown]
  - Subarachnoid haemorrhage [Unknown]
  - Periorbital cellulitis [Unknown]
  - Herpes simplex [Unknown]
  - Klebsiella infection [Unknown]
  - Skin necrosis [Unknown]
  - Eye swelling [Unknown]
  - Cerebellar infarction [Unknown]
